FAERS Safety Report 7734089-9 (Version None)
Quarter: 2011Q3

REPORT INFORMATION
  Report Type: 
  Country: None (occurrence: None)
  Receive Date: 20110907
  Receipt Date: 20110901
  Transmission Date: 20111222
  Serious: Yes (Death, Hospitalization)
  Sender: FDA-Public Use
  Company Number: NL-ROCHE-770816

PATIENT
  Sex: Female

DRUGS (6)
  1. IMODIUM [Concomitant]
     Dosage: DAILY DOSE:6 DD 2MG
     Dates: start: 20110603
  2. EPIRUBICIN [Suspect]
     Indication: GASTRIC CANCER
     Route: 042
     Dates: start: 20100322
  3. OCTREOTIDE ACETATE [Concomitant]
     Dosage: DAILY DOSE:50 UG/HR
     Dates: start: 20110608
  4. CAPECITABINE [Suspect]
     Indication: GASTRIC CANCER
     Dosage: FREQUENCY: BID FOR 2 WEEKS, LAST DOSE PRIOR TO SAE: 04 APRIL 2011
     Route: 048
     Dates: start: 20110322
  5. CISPLATIN [Suspect]
     Indication: GASTRIC CANCER
     Route: 042
     Dates: start: 20110322
  6. IMODIUM [Concomitant]
     Dates: start: 20110404

REACTIONS (3)
  - SEPSIS [None]
  - DIHYDROPYRIMIDINE DEHYDROGENASE DEFICIENCY [None]
  - DIARRHOEA [None]
